FAERS Safety Report 7936395-1 (Version None)
Quarter: 2011Q4

REPORT INFORMATION
  Report Type: 
  Country: None (occurrence: None)
  Receive Date: 20111123
  Receipt Date: 20111116
  Transmission Date: 20120403
  Serious: Yes (Other)
  Sender: FDA-Public Use
  Company Number: US-AMGEN-USASP2011060514

PATIENT
  Age: 68 Year
  Sex: Female

DRUGS (1)
  1. ENBREL [Suspect]
     Indication: RHEUMATOID ARTHRITIS
     Dosage: 50 MG, QWK
     Dates: start: 20000501

REACTIONS (6)
  - SCAPULA FRACTURE [None]
  - JOINT RANGE OF MOTION DECREASED [None]
  - ROTATOR CUFF SYNDROME [None]
  - INFUSION SITE INFECTION [None]
  - OSTEOPOROSIS [None]
  - MUSCULOSKELETAL PAIN [None]
